FAERS Safety Report 8221702-5 (Version None)
Quarter: 2012Q1

REPORT INFORMATION
  Report Type: 
  Country: None (occurrence: None)
  Receive Date: 20120314
  Receipt Date: 20120307
  Transmission Date: 20120608
  Serious: Yes (Other)
  Sender: FDA-Public Use
  Company Number: ACO_29447_2012

PATIENT
  Sex: Female
  Weight: 81.6 kg

DRUGS (7)
  1. TRIAMTERENE (TRIAMTERENE) [Concomitant]
  2. ATIVAN [Concomitant]
  3. SYNTROID (LEVOTHYROXINE SODIUM) [Concomitant]
  4. LIPITOR [Concomitant]
  5. ZOLOFT [Concomitant]
  6. VITAMIN NOS (VITAMIN NOS) [Concomitant]
  7. AMPYRA [Suspect]
     Indication: PRODUCT USED FOR UNKNOWN INDICATION
     Dosage: 1 TAB, BID
     Dates: end: 20111201

REACTIONS (1)
  - NEPHROLITHIASIS [None]
